FAERS Safety Report 6162522-5 (Version None)
Quarter: 2009Q2

REPORT INFORMATION
  Report Type: 
  Country: None (occurrence: None)
  Receive Date: 20090421
  Receipt Date: 20090416
  Transmission Date: 20091009
  Serious: Yes (Hospitalization)
  Sender: FDA-Public Use
  Company Number: JP-ABBOTT-09P-087-0565592-00

PATIENT
  Sex: Male
  Weight: 64 kg

DRUGS (9)
  1. HUMIRA [Suspect]
     Indication: RHEUMATOID ARTHRITIS
     Route: 058
     Dates: start: 20081007, end: 20090203
  2. HUMIRA [Suspect]
     Route: 058
     Dates: start: 20090217, end: 20090217
  3. PREDNISOLONE [Suspect]
     Indication: RHEUMATOID ARTHRITIS
     Route: 048
     Dates: start: 20080722
  4. PREDNISOLONE [Suspect]
     Route: 048
     Dates: start: 20080722, end: 20090217
  5. MOSAPRIDE CITRATE [Concomitant]
     Indication: RHEUMATOID ARTHRITIS
     Route: 048
     Dates: start: 20080722, end: 20081017
  6. FUROSEMIDE [Concomitant]
     Indication: DRUG USE FOR UNKNOWN INDICATION
     Route: 048
     Dates: start: 20061104
  7. VALSARTAN [Concomitant]
     Indication: DRUG USE FOR UNKNOWN INDICATION
     Route: 048
     Dates: start: 20061104
  8. CARVEDILOL [Concomitant]
     Indication: DRUG USE FOR UNKNOWN INDICATION
     Route: 048
     Dates: start: 20061104
  9. AMIODARONE HCL [Concomitant]
     Indication: DRUG USE FOR UNKNOWN INDICATION
     Route: 048
     Dates: start: 20061104

REACTIONS (5)
  - ABDOMINAL PAIN UPPER [None]
  - ANAEMIA [None]
  - DIVERTICULAR PERFORATION [None]
  - FAECES DISCOLOURED [None]
  - HERPES ZOSTER [None]
